FAERS Safety Report 8614263-X (Version None)
Quarter: 2012Q3

REPORT INFORMATION
  Report Type: 
  Country: None (occurrence: None)
  Receive Date: 20120823
  Receipt Date: 20120813
  Transmission Date: 20120928
  Serious: Yes (Disabling)
  Sender: FDA-Public Use
  Company Number: US-009507513-1208USA005560

PATIENT

DRUGS (1)
  1. PROPECIA [Suspect]
     Indication: ANDROGENETIC ALOPECIA
     Dosage: 1 MG TABLETS
     Route: 048
     Dates: start: 20020101

REACTIONS (3)
  - SEXUAL DYSFUNCTION [None]
  - EMOTIONAL DISTRESS [None]
  - ANXIETY [None]
